FAERS Safety Report 20196600 (Version 4)
Quarter: 2022Q1

REPORT INFORMATION
  Report Type: Spontaneous
  Country: None (occurrence: IT)
  Receive Date: 20211216
  Receipt Date: 20220317
  Transmission Date: 20220424
  Serious: Yes (Hospitalization)
  Sender: FDA-Public Use
  Company Number: IT-Stallergenes SAS-2123126

PATIENT
  Age: 19 Year
  Sex: Female
  Weight: 55 kg

DRUGS (2)
  1. ORALAIR [Suspect]
     Active Substance: ANTHOXANTHUM ODORATUM POLLEN\DACTYLIS GLOMERATA POLLEN\LOLIUM PERENNE POLLEN\PHLEUM PRATENSE POLLEN\
     Indication: Rhinitis allergic
     Dates: start: 20211201, end: 20211201
  2. DESLORATADINE [Concomitant]
     Active Substance: DESLORATADINE

REACTIONS (10)
  - Oedema mouth [Recovering/Resolving]
  - Tongue pruritus [Recovered/Resolved]
  - Urticaria [Recovering/Resolving]
  - Tremor [Recovering/Resolving]
  - Pruritus [Recovering/Resolving]
  - Erythema [Recovering/Resolving]
  - Oral pruritus [Recovered/Resolved]
  - Rash erythematous [Recovered/Resolved]
  - Pruritus [Recovered/Resolved]
  - Urticaria [Recovering/Resolving]

NARRATIVE: CASE EVENT DATE: 20211201
